FAERS Safety Report 16820283 (Version 2)
Quarter: 2020Q3

REPORT INFORMATION
  Report Type: Spontaneous
  Country: US (occurrence: US)
  Receive Date: 20190918
  Receipt Date: 20200919
  Transmission Date: 20201102
  Serious: Yes (Hospitalization, Other)
  Sender: FDA-Public Use
  Company Number: US-MICRO LABS LIMITED-ML2019-02484

PATIENT
  Age: 74 Year
  Sex: Female

DRUGS (8)
  1. LOSARTAN. [Suspect]
     Active Substance: LOSARTAN
  2. TIZANIDINE. [Concomitant]
     Active Substance: TIZANIDINE
  3. WARFARIN [Concomitant]
     Active Substance: WARFARIN
  4. METHENAMINE [Concomitant]
     Active Substance: METHENAMINE
  5. SIMVASTATIN. [Concomitant]
     Active Substance: SIMVASTATIN
  6. BACLOFEN. [Concomitant]
     Active Substance: BACLOFEN
  7. FUROSEMIDE. [Concomitant]
     Active Substance: FUROSEMIDE
  8. FLUOXETINE [Concomitant]
     Active Substance: FLUOXETINE HYDROCHLORIDE

REACTIONS (3)
  - Hepatomegaly [Recovering/Resolving]
  - Drug reaction with eosinophilia and systemic symptoms [Recovering/Resolving]
  - Liver function test abnormal [Recovering/Resolving]
